FAERS Safety Report 6152792-1 (Version None)
Quarter: 2009Q2

REPORT INFORMATION
  Report Type: 
  Country: None (occurrence: None)
  Receive Date: 20090409
  Receipt Date: 20090403
  Transmission Date: 20091009
  Serious: Yes (Disabling)
  Sender: FDA-Public Use
  Company Number: 2009002035

PATIENT
  Age: 81 Year
  Sex: Female
  Weight: 64.8644 kg

DRUGS (5)
  1. TREANDA [Suspect]
     Indication: CHRONIC LYMPHOCYTIC LEUKAEMIA
     Dosage: 200 MG (200 MG, RECEIVED ONE DOSE), INTRAVENOUS
     Route: 042
     Dates: start: 20090310, end: 20090310
  2. DETROL [Concomitant]
  3. ACIPHEX [Concomitant]
  4. ARICEPT [Concomitant]
  5. THYROID REPLACEMENTS (THYROID THERAPY) [Concomitant]

REACTIONS (1)
  - MICTURITION URGENCY [None]
